FAERS Safety Report 8529738-1 (Version None)
Quarter: 2012Q3

REPORT INFORMATION
  Report Type: 
  Country: None (occurrence: None)
  Receive Date: 20120710
  Receipt Date: 20090702
  Transmission Date: 20120928
  Serious: Yes (Other)
  Sender: FDA-Public Use
  Company Number: 2009AP002664

PATIENT
  Age: 7 Year
  Sex: Male

DRUGS (7)
  1. METHYLPHENIDATE HCL [Suspect]
     Indication: ABNORMAL BEHAVIOUR
     Dosage: 10 MG;QD ; 12.5 MG;BID
  2. METHYLPHENIDATE HCL [Suspect]
     Indication: ATTENTION DEFICIT/HYPERACTIVITY DISORDER
     Dosage: 10 MG;QD ; 12.5 MG;BID
  3. METHYLPHENIDATE HCL [Suspect]
     Indication: AGGRESSION
     Dosage: 10 MG;QD ; 12.5 MG;BID
  4. RISPERIDONE [Suspect]
     Indication: AGGRESSION
     Dosage: 1 MG;QD
  5. RISPERIDONE [Suspect]
     Indication: ABNORMAL BEHAVIOUR
     Dosage: 1 MG;QD
  6. RISPERIDONE [Suspect]
     Indication: OFF LABEL USE
     Dosage: 1 MG;QD
  7. RISPERIDONE [Suspect]
     Indication: ATTENTION DEFICIT/HYPERACTIVITY DISORDER
     Dosage: 1 MG;QD

REACTIONS (4)
  - OFF LABEL USE [None]
  - JOINT DISLOCATION [None]
  - OROMANDIBULAR DYSTONIA [None]
  - DYSTONIA [None]
